FAERS Safety Report 9777009 (Version 1)
Quarter: 2013Q4

REPORT INFORMATION
  Report Type: Report from Study
  Country: TW (occurrence: TW)
  Receive Date: 20131221
  Receipt Date: 20131221
  Transmission Date: 20140711
  Serious: Yes (Death, Other)
  Sender: FDA-Public Use
  Company Number: TW-ROCHE-1320325

PATIENT
  Sex: 0

DRUGS (2)
  1. PEG-INTERFERON ALFA 2A [Suspect]
     Indication: HEPATITIS C
     Dosage: EITHER IN COMBINATION WITH RIBAVIRIN OR AS MONOTHERAPY FOR 48 WEEKS
     Route: 065
  2. RIBAVIRIN [Suspect]
     Indication: HEPATITIS C
     Route: 065

REACTIONS (10)
  - Stevens-Johnson syndrome [Fatal]
  - Pneumonia [Unknown]
  - Peritonitis [Unknown]
  - Syncope [Unknown]
  - Hepatocellular carcinoma [Unknown]
  - Gastroenteritis salmonella [Unknown]
  - Duodenal ulcer haemorrhage [Unknown]
  - Anaemia [Unknown]
  - Neutropenia [Unknown]
  - Thrombocytopenia [Unknown]
